FAERS Safety Report 7529138-7 (Version None)
Quarter: 2011Q2

REPORT INFORMATION
  Report Type: 
  Country: None (occurrence: None)
  Receive Date: 20110607
  Receipt Date: 20050119
  Transmission Date: 20111010
  Serious: Yes (Hospitalization)
  Sender: FDA-Public Use
  Company Number: PHHO2005JP01385

PATIENT
  Sex: Female
  Weight: 62 kg

DRUGS (6)
  1. DIOVAN [Suspect]
     Indication: HYPERTENSION
     Dosage: 80 MG, QD
     Route: 048
     Dates: start: 20021029
  2. THYRADIN [Concomitant]
     Indication: HYPOTHYROIDISM
  3. GASMOTIN [Concomitant]
     Indication: GASTRITIS
  4. HYPOCA [Concomitant]
     Indication: HYPERTENSION
  5. SELBEX [Concomitant]
     Indication: EPIGASTRIC DISCOMFORT
  6. FAMOTIDINE [Concomitant]
     Indication: GASTRITIS

REACTIONS (1)
  - ENDOPHTHALMITIS [None]
